FAERS Safety Report 25019414 (Version 1)
Quarter: 2025Q1

REPORT INFORMATION
  Report Type: Spontaneous
  Country: MX (occurrence: MX)
  Receive Date: 20250227
  Receipt Date: 20250227
  Transmission Date: 20250408
  Serious: Yes (Other)
  Sender: TAKEDA
  Company Number: MX-TAKEDA-2025TUS019476

PATIENT
  Age: 75 Year
  Sex: Male

DRUGS (1)
  1. ENTYVIO [Suspect]
     Active Substance: VEDOLIZUMAB
     Indication: Crohn^s disease

REACTIONS (7)
  - Loss of consciousness [Unknown]
  - Chest pain [Unknown]
  - Fall [Unknown]
  - Face injury [Unknown]
  - Paraesthesia [Unknown]
  - Headache [Unknown]
  - Oropharyngeal pain [Unknown]
